FAERS Safety Report 5497408-2 (Version None)
Quarter: 2007Q4

REPORT INFORMATION
  Report Type: 
  Country: None (occurrence: None)
  Receive Date: 20071025
  Receipt Date: 20070417
  Transmission Date: 20080405
  Serious: No
  Sender: FDA-Public Use
  Company Number: US-BRISTOL-MYERS SQUIBB COMPANY-13751722

PATIENT
  Age: 65 Year
  Sex: Male
  Weight: 119 kg

DRUGS (3)
  1. METFORMIN HCL [Suspect]
     Indication: DIABETES MELLITUS
     Route: 048
     Dates: start: 20070315
  2. DIOVAN HCT [Concomitant]
     Dosage: 160MG/25 MG
  3. LEXAPRO [Concomitant]

REACTIONS (2)
  - BLOOD GLUCOSE FLUCTUATION [None]
  - MEDICATION RESIDUE [None]
